FAERS Safety Report 16202861 (Version 1)
Quarter: 2019Q2

REPORT INFORMATION
  Report Type: Spontaneous
  Country: US (occurrence: US)
  Receive Date: 20190414
  Receipt Date: 20190414
  Transmission Date: 20190711
  Serious: No
  Sender: FDA-Public Use
  Company Number: None

PATIENT
  Age: 34 Year
  Sex: Female

DRUGS (1)
  1. BATH BOMB [CANNABIDIOL] [Suspect]
     Active Substance: CANNABIDIOL\HERBALS
     Indication: PAIN MANAGEMENT
     Route: 061

REACTIONS (2)
  - Malaise [None]
  - Product formulation issue [None]

NARRATIVE: CASE EVENT DATE: 20190305
